FAERS Safety Report 18548145 (Version 5)
Quarter: 2024Q2

REPORT INFORMATION
  Report Type: Report from Study
  Country: US (occurrence: US)
  Receive Date: 20201125
  Receipt Date: 20240531
  Transmission Date: 20240715
  Serious: Yes (Hospitalization, Other)
  Sender: FDA-Public Use
  Company Number: US-TAKEDA-US202018983

PATIENT
  Age: 70 Year
  Sex: Female

DRUGS (2)
  1. HUMAN IMMUNOGLOBULIN G [Suspect]
     Active Substance: HUMAN IMMUNOGLOBULIN G
     Indication: Primary immunodeficiency syndrome
     Dosage: UNK
     Route: 058
  2. HUMAN IMMUNOGLOBULIN G [Suspect]
     Active Substance: HUMAN IMMUNOGLOBULIN G
     Indication: Immunodeficiency common variable

REACTIONS (12)
  - Sepsis [Unknown]
  - Rib fracture [Unknown]
  - Pneumonia [Unknown]
  - Fall [Unknown]
  - Cardiac failure congestive [Unknown]
  - Renal failure [Unknown]
  - Road traffic accident [Unknown]
  - Back injury [Unknown]
  - Anaemia [Unknown]
  - Asthenia [Unknown]
  - Fatigue [Unknown]
  - Illness [Unknown]

NARRATIVE: CASE EVENT DATE: 20200201
